FAERS Safety Report 16260982 (Version 5)
Quarter: 2020Q2

REPORT INFORMATION
  Report Type: Report from Study
  Country: US (occurrence: US)
  Receive Date: 20190501
  Receipt Date: 20200629
  Transmission Date: 20200713
  Serious: Yes (Hospitalization)
  Sender: FDA-Public Use
  Company Number: US-ACTELION-A-NJ2019-189777

PATIENT
  Age: 51 Year
  Sex: Female

DRUGS (1)
  1. VELETRI [Suspect]
     Active Substance: EPOPROSTENOL
     Indication: PULMONARY ARTERIAL HYPERTENSION
     Dosage: 43 NG/KG, PER MIN
     Route: 042
     Dates: start: 20171002

REACTIONS (8)
  - Sepsis [Unknown]
  - Diarrhoea [Unknown]
  - Device infusion issue [Recovered/Resolved]
  - Heart rate increased [Recovered/Resolved]
  - Hospitalisation [Unknown]
  - Dyspnoea [Recovered/Resolved]
  - Pyrexia [Unknown]
  - Pneumonia [Unknown]

NARRATIVE: CASE EVENT DATE: 20200523
